FAERS Safety Report 5196393-0 (Version None)
Quarter: 2007Q1

REPORT INFORMATION
  Report Type: 
  Country: None (occurrence: None)
  Receive Date: 20070102
  Receipt Date: 20061226
  Transmission Date: 20070707
  Serious: Yes (Hospitalization)
  Sender: FDA-Public Use
  Company Number: US-MERCK-0612USA04048

PATIENT
  Age: 74 Year
  Sex: Male

DRUGS (2)
  1. JANUVIA [Suspect]
     Indication: DIABETES MELLITUS NON-INSULIN-DEPENDENT
     Route: 048
     Dates: start: 20061201, end: 20061201
  2. CARVEDILOL [Concomitant]
     Route: 065

REACTIONS (2)
  - RASH [None]
  - RASH GENERALISED [None]
